FAERS Safety Report 18120886 (Version 2)
Quarter: 2020Q3

REPORT INFORMATION
  Report Type: Spontaneous
  Country: US (occurrence: US)
  Receive Date: 20200806
  Receipt Date: 20200827
  Transmission Date: 20201103
  Serious: No
  Sender: FDA-Public Use
  Company Number: US-B.I. PHARMACEUTICALS,INC./RIDGEFIELD-2020-BI-039260

PATIENT
  Age: 51 Year
  Sex: Male

DRUGS (3)
  1. MENTHOL. [Concomitant]
     Active Substance: MENTHOL
     Indication: ARTHRALGIA
     Route: 065
  2. ACETAMINOPHEN AND CODEINE [Concomitant]
     Active Substance: ACETAMINOPHEN\CODEINE PHOSPHATE
     Indication: ARTHRALGIA
     Route: 065
  3. MOBIC [Suspect]
     Active Substance: MELOXICAM
     Indication: ARTHRALGIA
     Route: 065

REACTIONS (3)
  - Exostosis [Not Recovered/Not Resolved]
  - Bone cyst [Not Recovered/Not Resolved]
  - Chondropathy [Not Recovered/Not Resolved]
